FAERS Safety Report 11938961 (Version 1)
Quarter: 2016Q1

REPORT INFORMATION
  Report Type: Spontaneous
  Country: US (occurrence: US)
  Receive Date: 20160122
  Receipt Date: 20160122
  Transmission Date: 20160526
  Serious: No
  Sender: FDA-Public Use
  Company Number: US-TEVA-601823USA

PATIENT
  Sex: Female

DRUGS (1)
  1. COMOLYN SODIUM [Suspect]
     Active Substance: CROMOLYN
     Route: 065

REACTIONS (2)
  - Cough [Unknown]
  - Sputum discoloured [Unknown]
